FAERS Safety Report 16064092 (Version 1)
Quarter: 2019Q1

REPORT INFORMATION
  Report Type: Spontaneous
  Country: CH (occurrence: CH)
  Receive Date: 20190312
  Receipt Date: 20190312
  Transmission Date: 20190418
  Serious: Yes (Hospitalization)
  Sender: FDA-Public Use
  Company Number: CH-NOVAST LABORATORIES, LTD-CH-2019NOV000063

PATIENT
  Age: 73 Year
  Sex: Male

DRUGS (5)
  1. BUTALBITAL, ACETAMINOPHEN, AND CAFFEINE [Suspect]
     Active Substance: ACETAMINOPHEN\BUTALBITAL\CAFFEINE
     Indication: PAIN MANAGEMENT
     Dosage: 2 G, QD
  2. DIPYRONE [Concomitant]
     Active Substance: DIPYRONE
     Indication: PAIN
     Dosage: UNK
  3. FLUCLOXACILLIN [Suspect]
     Active Substance: FLUCLOXACILLIN
     Indication: JOINT PROSTHESIS USER
     Dosage: UNK
     Route: 042
  4. BUPRENORPHINE. [Concomitant]
     Active Substance: BUPRENORPHINE
     Indication: PAIN
     Dosage: UNK
  5. RIFAMPICIN [Concomitant]
     Active Substance: RIFAMPIN
     Indication: JOINT PROSTHESIS USER
     Dosage: UNK

REACTIONS (1)
  - Metabolic acidosis [Recovered/Resolved]
